FAERS Safety Report 4848006-2 (Version None)
Quarter: 2005Q4

REPORT INFORMATION
  Report Type: 
  Country: None (occurrence: None)
  Receive Date: 20051206
  Receipt Date: 20050824
  Transmission Date: 20060501
  Serious: Yes (Hospitalization)
  Sender: FDA-Public Use
  Company Number: US016414

PATIENT
  Age: 52 Year
  Sex: Female

DRUGS (29)
  1. TRISENOX [Suspect]
     Indication: ACUTE PROMYELOCYTIC LEUKAEMIA
     Dosage: 9.52 MG QD INTRAVENOUS DRIP
     Route: 041
     Dates: start: 20050210, end: 20050225
  2. TRISENOX [Suspect]
     Indication: ACUTE PROMYELOCYTIC LEUKAEMIA
     Dosage: 9.52 MG QD INTRAVENOUS DRIP
     Route: 041
     Dates: start: 20050325, end: 20050501
  3. TRISENOX [Suspect]
     Indication: ACUTE PROMYELOCYTIC LEUKAEMIA
     Dosage: 8.92 MG QD INTRAVENOUS DRIP
     Route: 041
     Dates: start: 20050808, end: 20050909
  4. INSULIN HUMAN [Concomitant]
  5. SPIRONOLACTONE [Concomitant]
  6. LANSOPRAZOLE [Concomitant]
  7. LEVOFLOXACIN [Concomitant]
  8. TAZOBACTAM: PIPERCILLIN [Concomitant]
  9. VANCOMYCIN HYDROCHLORIDE [Concomitant]
  10. BROTIZOLAM [Concomitant]
  11. ENALAPRIL MALEATE [Concomitant]
  12. AMLDOIPINE BESILATE [Concomitant]
  13. REBAMIPIDE [Concomitant]
  14. DOMPERIDONE [Concomitant]
  15. ANTIBIOTICS-RESISTANT LACTIC ACID BACTERIAE [Concomitant]
  16. LOXOPROFEN [Concomitant]
  17. CEFCAPENE PIVOXIL HYDROCHLORIDE [Concomitant]
  18. CLINDAMYCIN PHOSPHATE [Concomitant]
  19. CEFOZOPRAN [Concomitant]
  20. ACYCLOVIR [Concomitant]
  21. GABEXATE MESILATE [Concomitant]
  22. LAFUTIDINE [Concomitant]
  23. IMIPENEM CILASTATIN [Concomitant]
  24. IDARUBICIN HCL [Concomitant]
  25. MEROPENEM TRIHYDRATE [Concomitant]
  26. ITRACONAZOLE [Concomitant]
  27. MICAFUNGIN SODIUM [Concomitant]
  28. FLUCONAZOLE [Concomitant]
  29. POTASSIUM CHLORIDE [Concomitant]

REACTIONS (4)
  - BASOPHILIA [None]
  - ELECTROCARDIOGRAM QT CORRECTED INTERVAL PROLONGED [None]
  - LEUKOCYTOSIS [None]
  - PYREXIA [None]
